FAERS Safety Report 25389723 (Version 1)
Quarter: 2025Q2

REPORT INFORMATION
  Report Type: Report from Study
  Country: CA (occurrence: CA)
  Receive Date: 20250603
  Receipt Date: 20250603
  Transmission Date: 20250717
  Serious: Yes (Other)
  Sender: TAKEDA
  Company Number: CA-TAKEDA-2023TUS111679

PATIENT
  Sex: Female

DRUGS (2)
  1. VEDOLIZUMAB [Suspect]
     Active Substance: VEDOLIZUMAB
     Indication: Colitis ulcerative
  2. VEDOLIZUMAB [Suspect]
     Active Substance: VEDOLIZUMAB

REACTIONS (7)
  - Haematochezia [Unknown]
  - Mucous stools [Unknown]
  - Defaecation urgency [Unknown]
  - Anorectal discomfort [Unknown]
  - Abdominal distension [Unknown]
  - Proctalgia [Unknown]
  - Abdominal pain [Unknown]
